FAERS Safety Report 9746573 (Version 3)
Quarter: 2014Q1

REPORT INFORMATION
  Report Type: Spontaneous
  Country: JP (occurrence: JP)
  Receive Date: 20131211
  Receipt Date: 20140107
  Transmission Date: 20141002
  Serious: Yes (Hospitalization, Other)
  Sender: FDA-Public Use
  Company Number: JP-PFIZER INC-2013352814

PATIENT
  Age: 58 Year
  Sex: Female
  Weight: 42 kg

DRUGS (4)
  1. LYRICA [Suspect]
     Dosage: 150 MG, DAILY
     Route: 048
     Dates: start: 201212, end: 20130117
  2. LYRICA [Suspect]
     Dosage: 225 MG, DAILY
     Route: 048
     Dates: start: 20130118, end: 20130129
  3. CELECOX [Suspect]
     Dosage: 200 MG, 2X/DAY
     Route: 048
     Dates: start: 20130118, end: 20130129
  4. CODEINE PHOSPHATE [Concomitant]
     Dosage: 30 MG, 3X/DAY
     Route: 048
     Dates: start: 20121222, end: 20130129

REACTIONS (3)
  - Rash [Recovered/Resolved]
  - Pyrexia [Recovered/Resolved]
  - Hepatic function abnormal [Unknown]
